FAERS Safety Report 24310684 (Version 1)
Quarter: 2024Q3

REPORT INFORMATION
  Report Type: Spontaneous
  Country: US (occurrence: US)
  Receive Date: 20240912
  Receipt Date: 20240912
  Transmission Date: 20241017
  Serious: No
  Sender: ADARE PHARMACEUTICALS
  Company Number: US-ADAREPHARM-2024-US-000030

PATIENT
  Age: 65 Year
  Sex: Female
  Weight: 77.11 kg

DRUGS (4)
  1. PROPRANOLOL [Suspect]
     Active Substance: PROPRANOLOL HYDROCHLORIDE
     Indication: Tremor
     Dosage: SHE STARTED WITH PROPRANOLOL ER 60MG ONCE-A-DAY IN THE MORNING
     Dates: start: 2024
  2. ZETIA [Concomitant]
     Active Substance: EZETIMIBE
     Indication: Blood cholesterol increased
     Dates: start: 2024
  3. GABAPENTIN [Concomitant]
     Active Substance: GABAPENTIN
     Indication: Insomnia
     Dosage: SHE INCREASED HER GABAPENTIN TO 825MG
     Dates: start: 2024
  4. OTC Melatonin [Concomitant]

REACTIONS (4)
  - Insomnia [Recovering/Resolving]
  - Nightmare [Unknown]
  - Drug ineffective for unapproved indication [Unknown]
  - Mood altered [Unknown]

NARRATIVE: CASE EVENT DATE: 20240101
